FAERS Safety Report 25658211 (Version 2)
Quarter: 2025Q3

REPORT INFORMATION
  Report Type: Spontaneous
  Country: JP (occurrence: JP)
  Receive Date: 20250808
  Receipt Date: 20250825
  Transmission Date: 20251021
  Serious: Yes (Life-Threatening, Other)
  Sender: ABBVIE
  Company Number: JP-LUNDBECK-DKLU4017782

PATIENT
  Age: 17 Year

DRUGS (3)
  1. LEXAPRO [Interacting]
     Active Substance: ESCITALOPRAM OXALATE
     Indication: Product used for unknown indication
     Route: 048
  2. QUETIAPINE FUMARATE [Interacting]
     Active Substance: QUETIAPINE FUMARATE
     Indication: Product used for unknown indication
     Route: 048
  3. ATOMOXETINE HYDROCHLORIDE [Interacting]
     Active Substance: ATOMOXETINE HYDROCHLORIDE
     Indication: Product used for unknown indication
     Route: 048

REACTIONS (6)
  - Arrhythmia [Recovering/Resolving]
  - Product administered to patient of inappropriate age [Unknown]
  - Generalised tonic-clonic seizure [Recovering/Resolving]
  - Drug interaction [Recovering/Resolving]
  - Cardiac arrest [Recovering/Resolving]
  - Overdose [Unknown]
